FAERS Safety Report 12380078 (Version 1)
Quarter: 2016Q2

REPORT INFORMATION
  Report Type: Spontaneous
  Country: US (occurrence: None)
  Receive Date: 20160516
  Receipt Date: 20160516
  Transmission Date: 20160815
  Serious: No
  Sender: FDA-Public Use
  Company Number: None

PATIENT
  Age: 62 Year
  Sex: Female

DRUGS (1)
  1. HARVONI [Suspect]
     Active Substance: LEDIPASVIR\SOFOSBUVIR
     Dosage: 90-400 QD ORAL
     Route: 048

REACTIONS (9)
  - Hepatic pain [None]
  - Urine output increased [None]
  - Weight decreased [None]
  - Fatigue [None]
  - Nausea [None]
  - Insomnia [None]
  - Visual impairment [None]
  - Parosmia [None]
  - Feeling abnormal [None]

NARRATIVE: CASE EVENT DATE: 20160430
